FAERS Safety Report 4347986-1 (Version None)
Quarter: 2004Q2

REPORT INFORMATION
  Report Type: 
  Country: None (occurrence: None)
  Receive Date: 20040422
  Receipt Date: 20040412
  Transmission Date: 20050107
  Serious: Yes (Death)
  Sender: FDA-Public Use
  Company Number: 2004209255JP

PATIENT
  Age: 50 Year
  Sex: Male

DRUGS (7)
  1. HALCION [Suspect]
     Indication: PAIN
     Dosage: ORAL
     Route: 048
     Dates: end: 20030713
  2. HALOPERIDOL [Suspect]
     Dosage: IV
     Route: 042
     Dates: end: 20030713
  3. DORMICUM ^ROCHE^ (MIDAZOLAM MALEATE) [Suspect]
     Dosage: IV
     Route: 042
     Dates: end: 20030713
  4. HYOSCINE HBR HYT [Concomitant]
     Dosage: IV
     Route: 042
     Dates: end: 20030713
  5. CARTEOLOL (CARTEOLOL) [Concomitant]
  6. PROTERNOL(ISOPRENALINE HYDROCHLORIDE) [Concomitant]
  7. DOBUTAMINE HCL [Concomitant]

REACTIONS (6)
  - BLOOD PRESSURE DECREASED [None]
  - CARDIAC ARREST [None]
  - CARDIAC FAILURE [None]
  - HEART RATE DECREASED [None]
  - PULMONARY INFARCTION [None]
  - SHOCK [None]
